FAERS Safety Report 7191531-2 (Version None)
Quarter: 2010Q4

REPORT INFORMATION
  Report Type: 
  Country: None (occurrence: None)
  Receive Date: 20101223
  Receipt Date: 20101206
  Transmission Date: 20110411
  Serious: Yes (Other)
  Sender: FDA-Public Use
  Company Number: US-BAYER-200713626BWH

PATIENT
  Sex: Male

DRUGS (11)
  1. NEXAVAR [Suspect]
     Indication: RENAL CELL CARCINOMA
     Route: 048
     Dates: start: 20070914, end: 20070928
  2. NEXAVAR [Suspect]
     Dosage: 200 MG, BID
     Route: 048
     Dates: start: 20070822
  3. NEXAVAR [Suspect]
     Dosage: 200MG IN THE AM AND 200MG IN THE PM
     Route: 048
     Dates: start: 20090101
  4. BLOOD PRESSURE MEDICATION (NOS) [Concomitant]
  5. CALCIUM [Concomitant]
  6. CALCIUM [Concomitant]
  7. CALCIUM [Concomitant]
  8. VOLTAREN [Concomitant]
  9. DIURETICS [Concomitant]
  10. FISH OIL [Concomitant]
  11. UNCODEABLE ^UNCLASSIFIABLE^ [Concomitant]

REACTIONS (4)
  - BLISTER [None]
  - BLOOD PRESSURE INCREASED [None]
  - MUSCLE SPASMS [None]
  - RASH [None]
